FAERS Safety Report 4676450-5 (Version None)
Quarter: 2005Q2

REPORT INFORMATION
  Report Type: 
  Country: None (occurrence: None)
  Receive Date: 20050527
  Receipt Date: 20050303
  Transmission Date: 20051028
  Serious: Yes (Death)
  Sender: FDA-Public Use
  Company Number: US-MERCK-0503USA00849

PATIENT
  Age: 48 Year
  Sex: Male
  Weight: 95 kg

DRUGS (7)
  1. VIOXX [Suspect]
     Indication: PAIN IN EXTREMITY
     Route: 048
     Dates: start: 20030217, end: 20030319
  2. VIOXX [Suspect]
     Route: 048
     Dates: start: 20000501
  3. VIOXX [Suspect]
     Route: 048
     Dates: start: 20000701
  4. VIOXX [Suspect]
     Indication: ARTHRALGIA
     Route: 048
     Dates: start: 20030217, end: 20030319
  5. VIOXX [Suspect]
     Route: 048
     Dates: start: 20000501
  6. VIOXX [Suspect]
     Route: 048
     Dates: start: 20000701
  7. AMBIEN [Concomitant]
     Route: 065

REACTIONS (9)
  - ATHEROSCLEROSIS [None]
  - CHEST PAIN [None]
  - CORONARY ARTERY OCCLUSION [None]
  - HEPATIC STEATOSIS [None]
  - MYOCARDIAL INFARCTION [None]
  - PULMONARY CONGESTION [None]
  - RENAL CELL CARCINOMA STAGE UNSPECIFIED [None]
  - SMALL CELL CARCINOMA [None]
  - UPPER RESPIRATORY TRACT INFECTION [None]
